FAERS Safety Report 10599929 (Version 4)
Quarter: 2015Q1

REPORT INFORMATION
  Report Type: Spontaneous
  Country: JP (occurrence: JP)
  Receive Date: 20141121
  Receipt Date: 20150102
  Transmission Date: 20150720
  Serious: Yes (Death, Hospitalization)
  Sender: FDA-Public Use
  Company Number: JP-009507513-1411JPN009740

PATIENT
  Age: 96 Year
  Sex: Female

DRUGS (10)
  1. BUFFERIN [Concomitant]
     Active Substance: ASPIRIN
     Dosage: 81 MG, QD
     Route: 048
  2. BELSOMRA [Suspect]
     Active Substance: SUVOREXANT
     Indication: INSOMNIA
     Dosage: 7.5 MG, UNK
     Route: 048
     Dates: start: 20141109, end: 20141115
  3. REZALTAS [Concomitant]
     Active Substance: AZELNIDIPINE\OLMESARTAN MEDOXOMIL
     Dosage: 1 DF, QD, AFTER THE BREAKFAST
     Route: 048
  4. MUCOSOLVAN [Concomitant]
     Active Substance: AMBROXOL\CLENBUTEROL
     Dosage: 15 MG, TID
     Route: 048
  5. MEMARY [Concomitant]
     Active Substance: MEMANTINE HYDROCHLORIDE
     Indication: DEMENTIA
     Dosage: 20 MG, QD, AFTER THE BREAKFAST
     Route: 048
  6. PHELLOBERIN [Concomitant]
     Dosage: 4 DF DAILY, ONE TABLET IN MORNING, ONE TABLET IN DAYTIME AND TWO TABLETS AT NIGHT
     Route: 048
  7. NITRODERM [Concomitant]
     Active Substance: NITROGLYCERIN
     Dosage: 1 DF, PRN, ADMINISTRATED WHEN ATTACKED
     Route: 062
  8. BELSOMRA [Suspect]
     Active Substance: SUVOREXANT
     Dosage: 15 MG, QD
     Route: 048
     Dates: start: 20141107, end: 20141108
  9. ARICEPT [Concomitant]
     Active Substance: DONEPEZIL HYDROCHLORIDE
     Dosage: 10 MG, QD
     Route: 048
  10. ONON [Concomitant]
     Active Substance: PRANLUKAST
     Dosage: 4 DF, BID
     Route: 048

REACTIONS (1)
  - Interstitial lung disease [Fatal]

NARRATIVE: CASE EVENT DATE: 201411
